FAERS Safety Report 12653854 (Version 1)
Quarter: 2016Q3

REPORT INFORMATION
  Report Type: Spontaneous
  Country: US (occurrence: US)
  Receive Date: 20160816
  Receipt Date: 20160816
  Transmission Date: 20161109
  Serious: No
  Sender: FDA-Public Use
  Company Number: US-BEH-2016072420

PATIENT
  Sex: Female
  Weight: 43.84 kg

DRUGS (32)
  1. ZEMAIRA [Suspect]
     Active Substance: .ALPHA.1-PROTEINASE INHIBITOR HUMAN
     Indication: ALPHA-1 ANTI-TRYPSIN DEFICIENCY
     Dosage: 60 MG, QW
     Route: 042
     Dates: start: 20080114
  2. CLONIDINE. [Concomitant]
     Active Substance: CLONIDINE
  3. CELEBREX [Concomitant]
     Active Substance: CELECOXIB
  4. CALCITONIN [Concomitant]
     Active Substance: CALCITONIN
  5. TOPIRAMATE. [Concomitant]
     Active Substance: TOPIRAMATE
  6. LORAZEPAM. [Concomitant]
     Active Substance: LORAZEPAM
  7. ALBUTEROL                          /00139501/ [Concomitant]
     Active Substance: ALBUTEROL
  8. BENTYL [Concomitant]
     Active Substance: DICYCLOMINE HYDROCHLORIDE
  9. DIPHENHYDRAMINE. [Concomitant]
     Active Substance: DIPHENHYDRAMINE
  10. DIPHENOXYLATE [Concomitant]
     Active Substance: DIPHENOXYLATE
  11. TRIAMCINOLONE [Concomitant]
     Active Substance: TRIAMCINOLONE
  12. XANAX [Concomitant]
     Active Substance: ALPRAZOLAM
  13. NORCO [Concomitant]
     Active Substance: ACETAMINOPHEN\HYDROCODONE BITARTRATE
  14. SODIUM CHLORIDE. [Concomitant]
     Active Substance: SODIUM CHLORIDE
  15. PROMETHAZINE - CODEINE             /01129901/ [Concomitant]
  16. CITALOPRAM [Concomitant]
     Active Substance: CITALOPRAM HYDROBROMIDE
  17. SYMBICORT [Concomitant]
     Active Substance: BUDESONIDE\FORMOTEROL FUMARATE DIHYDRATE
  18. PROMETHAZINE [Concomitant]
     Active Substance: PROMETHAZINE\PROMETHAZINE HYDROCHLORIDE
  19. MULTIVITAMIN                       /00097801/ [Concomitant]
     Active Substance: VITAMINS
  20. TUSSIONEX                          /00004701/ [Concomitant]
     Active Substance: BROMHEXINE
  21. OXYCODONE [Concomitant]
     Active Substance: OXYCODONE
  22. DEPO-PROVERA [Concomitant]
     Active Substance: MEDROXYPROGESTERONE ACETATE
  23. PROTONIX [Concomitant]
     Active Substance: PANTOPRAZOLE SODIUM
  24. MONTELUKAST [Concomitant]
     Active Substance: MONTELUKAST SODIUM
  25. CEPHALEXIN                         /00145501/ [Concomitant]
     Active Substance: CEPHALEXIN
  26. SULFAMETHOXAZOLE [Concomitant]
     Active Substance: SULFAMETHOXAZOLE
  27. ZOFRAN [Concomitant]
     Active Substance: ONDANSETRON HYDROCHLORIDE
  28. EPIPEN [Concomitant]
     Active Substance: EPINEPHRINE
  29. LEVAQUIN [Concomitant]
     Active Substance: LEVOFLOXACIN
  30. XOPENEX [Concomitant]
     Active Substance: LEVALBUTEROL HYDROCHLORIDE
  31. QNASL [Concomitant]
     Active Substance: BECLOMETHASONE DIPROPIONATE
  32. IMODIUM AD [Concomitant]
     Active Substance: LOPERAMIDE HYDROCHLORIDE

REACTIONS (1)
  - Urinary tract infection [Unknown]
